FAERS Safety Report 23929329 (Version 2)
Quarter: 2025Q3

REPORT INFORMATION
  Report Type: Spontaneous
  Country: US (occurrence: US)
  Receive Date: 20240601
  Receipt Date: 20250703
  Transmission Date: 20251021
  Serious: No
  Sender: RADIUS PHARM
  Company Number: US-RADIUS HEALTH INC.-2024US002209

PATIENT
  Sex: Female

DRUGS (1)
  1. TYMLOS [Suspect]
     Active Substance: ABALOPARATIDE
     Indication: Osteoporosis postmenopausal
     Route: 065
     Dates: start: 2023

REACTIONS (16)
  - Fatigue [Recovered/Resolved]
  - Headache [Recovered/Resolved]
  - Heart rate increased [Recovered/Resolved]
  - Heart rate irregular [Recovered/Resolved]
  - Palpitations [Recovered/Resolved]
  - Growing pains [Recovered/Resolved]
  - Hunger [Recovered/Resolved]
  - Asthenia [Recovered/Resolved]
  - Product administered at inappropriate site [Recovered/Resolved]
  - Weight increased [Recovered/Resolved]
  - Increased appetite [Recovered/Resolved]
  - Abdominal distension [Recovered/Resolved]
  - Bone pain [Recovered/Resolved]
  - Alopecia [Recovered/Resolved]
  - Pain [Recovered/Resolved]
  - Pain in extremity [Unknown]
